FAERS Safety Report 9762525 (Version 1)
Quarter: 2013Q4

REPORT INFORMATION
  Report Type: Spontaneous
  Country: US (occurrence: US)
  Receive Date: 20131216
  Receipt Date: 20131216
  Transmission Date: 20140711
  Serious: No
  Sender: FDA-Public Use
  Company Number: US-BIOGENIDEC-2013BI104650

PATIENT
  Age: 55 Year
  Sex: Male

DRUGS (3)
  1. TECFIDERA [Suspect]
     Indication: MULTIPLE SCLEROSIS
     Route: 048
     Dates: start: 201304, end: 201306
  2. TECFIDERA [Suspect]
     Indication: MULTIPLE SCLEROSIS
     Route: 048
     Dates: start: 201309, end: 201310
  3. TECFIDERA [Suspect]
     Indication: MULTIPLE SCLEROSIS
     Route: 048
     Dates: start: 201309, end: 201310

REACTIONS (5)
  - Fatigue [Not Recovered/Not Resolved]
  - Lymphadenopathy [Unknown]
  - Joint swelling [Unknown]
  - Arthralgia [Unknown]
  - Nausea [Unknown]
